FAERS Safety Report 4828213-5 (Version None)
Quarter: 2005Q4

REPORT INFORMATION
  Report Type: 
  Country: None (occurrence: None)
  Receive Date: 20051115
  Receipt Date: 20050926
  Transmission Date: 20060501
  Serious: Yes (Life-Threatening, Hospitalization)
  Sender: FDA-Public Use
  Company Number: 200512751JP

PATIENT
  Age: 66 Year
  Sex: Male
  Weight: 71 kg

DRUGS (6)
  1. RILUTEK [Suspect]
     Indication: AMYOTROPHIC LATERAL SCLEROSIS
     Route: 048
     Dates: start: 20050801, end: 20050907
  2. CYANOCOBALAMIN [Concomitant]
     Indication: AMYOTROPHIC LATERAL SCLEROSIS
     Route: 048
     Dates: end: 20050907
  3. LOXONIN [Concomitant]
     Indication: MYALGIA
     Route: 048
     Dates: start: 20050901
  4. LOXONIN [Concomitant]
     Indication: PYREXIA
     Route: 048
     Dates: start: 20050901
  5. MUCOSTA [Concomitant]
     Indication: PROPHYLAXIS
     Route: 048
     Dates: start: 20050901
  6. LENDORMIN [Concomitant]
     Indication: INSOMNIA
     Route: 048
     Dates: start: 20050907

REACTIONS (4)
  - COR PULMONALE [None]
  - HEPATIC FUNCTION ABNORMAL [None]
  - INTERSTITIAL LUNG DISEASE [None]
  - MYALGIA [None]
